FAERS Safety Report 7523493-X (Version None)
Quarter: 2011Q2

REPORT INFORMATION
  Report Type: 
  Country: None (occurrence: None)
  Receive Date: 20110603
  Receipt Date: 20100309
  Transmission Date: 20111010
  Serious: No
  Sender: FDA-Public Use
  Company Number: US-BAYER-201016248NA

PATIENT
  Sex: Female

DRUGS (1)
  1. AVELOX [Suspect]
     Indication: SINUSITIS BACTERIAL
     Dosage: UNK
     Dates: start: 20100303, end: 20100305

REACTIONS (4)
  - OEDEMA PERIPHERAL [None]
  - ARTHRITIS [None]
  - PAIN IN EXTREMITY [None]
  - FEELING HOT [None]
